FAERS Safety Report 22646040 (Version 1)
Quarter: 2023Q2

REPORT INFORMATION
  Report Type: Spontaneous
  Country: US (occurrence: None)
  Receive Date: 20230626
  Receipt Date: 20230626
  Transmission Date: 20230722
  Serious: Yes (Hospitalization)
  Sender: FDA-Public Use
  Company Number: None

PATIENT
  Age: 32 Month
  Sex: Female
  Weight: 10.7 kg

DRUGS (1)
  1. ASPARLAS [Suspect]
     Active Substance: CALASPARGASE PEGOL-MKNL
     Indication: B-cell type acute leukaemia
     Route: 042
     Dates: start: 20230422, end: 20230614

REACTIONS (3)
  - Cough [None]
  - Heart rate increased [None]
  - Infusion related reaction [None]

NARRATIVE: CASE EVENT DATE: 20230614
